FAERS Safety Report 20610456 (Version 1)
Quarter: 2022Q1

REPORT INFORMATION
  Report Type: Spontaneous
  Country: US (occurrence: US)
  Receive Date: 20220318
  Receipt Date: 20220318
  Transmission Date: 20220424
  Serious: No
  Sender: FDA-Public Use
  Company Number: US-Blueprint Medicines Corporation-SP-US-2022-000697

PATIENT
  Age: 77 Year
  Sex: Female

DRUGS (2)
  1. AYVAKIT [Suspect]
     Active Substance: AVAPRITINIB
     Indication: Systemic mastocytosis
     Dosage: 1 TABLET BY MOUTH OF 25 MG DAILY ALTERNATED WITH 50 MG TABLET EVERY OTHER DAY
     Route: 048
     Dates: start: 20210426
  2. AYVAKIT [Suspect]
     Active Substance: AVAPRITINIB
     Dosage: 1 TABLET BY MOUTH OF 25 MG DAILY ALTERNATED WITH 50 MG TABLET EVERY OTHER DAY
     Route: 048
     Dates: start: 20210426

REACTIONS (3)
  - Gastroenteritis viral [Recovered/Resolved]
  - Vomiting [Recovered/Resolved]
  - Off label use [Unknown]

NARRATIVE: CASE EVENT DATE: 20210426
